FAERS Safety Report 5024552-6 (Version None)
Quarter: 2006Q2

REPORT INFORMATION
  Report Type: 
  Country: None (occurrence: None)
  Receive Date: 20060608
  Receipt Date: 20060608
  Transmission Date: 20061013
  Serious: Yes (Hospitalization)
  Sender: FDA-Public Use
  Company Number: None

PATIENT
  Age: 66 Year
  Sex: Male
  Weight: 121.564 kg

DRUGS (8)
  1. PLAVIX [Suspect]
     Indication: CORONARY ARTERIAL STENT INSERTION
     Dosage: ONCE DAILY
     Dates: start: 20060208, end: 20060213
  2. ZOLOFT [Concomitant]
  3. HYDROCHLOROTHIAZIDE [Concomitant]
  4. SIMVASTATIN [Concomitant]
  5. FELODIPINE [Concomitant]
  6. NITROGLYCERIN [Concomitant]
  7. BACLOFEN [Concomitant]
  8. SULFAZALINE [Concomitant]

REACTIONS (4)
  - INSOMNIA [None]
  - NONSPECIFIC REACTION [None]
  - PRURITUS [None]
  - RASH [None]
